FAERS Safety Report 5342239-7 (Version None)
Quarter: 2007Q2

REPORT INFORMATION
  Report Type: 
  Country: None (occurrence: None)
  Receive Date: 20070412
  Receipt Date: 20070115
  Transmission Date: 20071010
  Serious: No
  Sender: FDA-Public Use
  Company Number: IPX00025

PATIENT
  Age: 13 Year
  Sex: Female

DRUGS (1)
  1. IPLEX [Suspect]
     Dosage: 0.5 MG/KG/DAILY/SC
     Route: 058
     Dates: start: 20060723, end: 20070115

REACTIONS (1)
  - DRUG INEFFECTIVE [None]
